APPROVED DRUG PRODUCT: ATENOLOL
Active Ingredient: ATENOLOL
Strength: 100MG
Dosage Form/Route: TABLET;ORAL
Application: A073476 | Product #001
Applicant: SUN PHARMACEUTICAL INDUSTRIES INC
Approved: Mar 30, 1993 | RLD: No | RS: No | Type: DISCN